FAERS Safety Report 5487690-X (Version None)
Quarter: 2007Q4

REPORT INFORMATION
  Report Type: 
  Country: None (occurrence: None)
  Receive Date: 20071017
  Receipt Date: 20071008
  Transmission Date: 20080405
  Serious: Yes (Hospitalization)
  Sender: FDA-Public Use
  Company Number: PHBS2007BR16689

PATIENT
  Age: 67 Year
  Sex: Female
  Weight: 54 kg

DRUGS (11)
  1. EXELON [Suspect]
     Indication: CEREBROVASCULAR ACCIDENT
     Dosage: 4.5 MG, BID
     Route: 048
     Dates: start: 20071005, end: 20071005
  2. EXELON [Suspect]
     Dosage: 1.5 MG, UNK
     Route: 048
  3. EXELON [Suspect]
     Dosage: 3 MG, UNK
     Route: 048
  4. EUTHYROX [Concomitant]
     Dosage: 75 MG, QD (FASTING COND.)
     Route: 048
  5. OLCADIL [Concomitant]
     Indication: ANXIETY
     Dosage: 0.5 MG AM + 1 MG AT NIGHT
     Route: 048
  6. HIDANTAL [Concomitant]
     Dosage: 100 MG, BID
     Route: 048
  7. BETALOR [Concomitant]
     Indication: HYPERTENSION
     Dosage: 100 MG, QD
     Route: 048
  8. CITALOPRAM HYDROBROMIDE [Concomitant]
     Dosage: 20 MG, QD
     Route: 048
  9. AMIODARONE [Concomitant]
     Dosage: 100 MG/D FROM MONDAY TO FRIDAY
     Route: 048
  10. PLAVIX [Concomitant]
     Dosage: 75 MG, QD
     Route: 048
  11. SIMVASTATIN [Concomitant]
     Dosage: 40 MG, QD
     Route: 048

REACTIONS (4)
  - DYSARTHRIA [None]
  - DYSSTASIA [None]
  - SOMNOLENCE [None]
  - TONGUE DISORDER [None]
